FAERS Safety Report 21839582 (Version 3)
Quarter: 2023Q1

REPORT INFORMATION
  Report Type: Spontaneous
  Country: JP (occurrence: JP)
  Receive Date: 20230109
  Receipt Date: 20230227
  Transmission Date: 20230418
  Serious: Yes (Disabling, Other)
  Sender: FDA-Public Use
  Company Number: JP-002147023-NVSJ2021JP021243

PATIENT
  Age: 73 Year
  Sex: Male
  Weight: 63 kg

DRUGS (4)
  1. BEOVU [Suspect]
     Active Substance: BROLUCIZUMAB-DBLL
     Indication: Age-related macular degeneration
     Dosage: 6 MG
     Route: 031
     Dates: start: 20210824, end: 20210824
  2. AMLODIPINE;IRBESARTAN [Concomitant]
     Indication: Product used for unknown indication
     Dosage: UNK
     Route: 065
  3. ALLOPURINOL [Concomitant]
     Active Substance: ALLOPURINOL
     Indication: Product used for unknown indication
     Dosage: 100 MG
     Route: 065
  4. RINDARON [Concomitant]
     Indication: Prophylaxis
     Dosage: UNK, QID
     Route: 047
     Dates: start: 20210824, end: 20220510

REACTIONS (10)
  - Retinal artery occlusion [Not Recovered/Not Resolved]
  - Retinal degeneration [Unknown]
  - Blindness [Not Recovered/Not Resolved]
  - Retinal vasculitis [Not Recovered/Not Resolved]
  - Glaucoma [Not Recovered/Not Resolved]
  - Intraocular pressure increased [Recovered/Resolved with Sequelae]
  - Iris neovascularisation [Unknown]
  - Anterior chamber inflammation [Recovered/Resolved]
  - Conjunctival hyperaemia [Unknown]
  - Visual field defect [Not Recovered/Not Resolved]

NARRATIVE: CASE EVENT DATE: 20210914
